FAERS Safety Report 9966489 (Version 2)
Quarter: 2014Q1

REPORT INFORMATION
  Report Type: Report from Study
  Country: PR (occurrence: PR)
  Receive Date: 20140305
  Receipt Date: 20140305
  Transmission Date: 20141002
  Serious: No
  Sender: FDA-Public Use
  Company Number: PR-ABBVIE-12P-131-0910435-00

PATIENT
  Age: 44 Year
  Sex: Female
  Weight: 107.14 kg

DRUGS (11)
  1. HUMIRA [Suspect]
     Indication: PSORIATIC ARTHROPATHY
     Route: 058
     Dates: start: 201112, end: 201202
  2. HUMIRA [Suspect]
     Route: 058
     Dates: start: 201204
  3. NEURONTIN [Concomitant]
     Indication: PAIN
     Route: 048
  4. METHOTREXATE [Concomitant]
     Indication: PSORIATIC ARTHROPATHY
     Route: 048
  5. FOLIC ACID [Concomitant]
     Indication: SUPPLEMENTATION THERAPY
     Route: 048
  6. ARTHROTEC [Concomitant]
     Indication: PAIN
     Route: 048
  7. ELAVIL [Concomitant]
     Indication: INSOMNIA
     Route: 048
  8. NORVASC [Concomitant]
     Indication: HYPERTENSION
     Route: 048
  9. PREVACID [Concomitant]
     Indication: GASTRITIS
     Route: 048
  10. ECHINACEA [Concomitant]
     Indication: SUPPLEMENTATION THERAPY
     Route: 048
  11. FLACCID [Concomitant]
     Indication: BLOOD CHOLESTEROL
     Route: 048

REACTIONS (1)
  - Nasopharyngitis [Recovered/Resolved]
